FAERS Safety Report 5678818-7 (Version None)
Quarter: 2008Q1

REPORT INFORMATION
  Report Type: 
  Country: None (occurrence: None)
  Receive Date: 20080321
  Receipt Date: 20080318
  Transmission Date: 20080703
  Serious: Yes (Death)
  Sender: FDA-Public Use
  Company Number: CLOF-1000116

PATIENT
  Age: 14 Year
  Sex: Female
  Weight: 43.5 kg

DRUGS (2)
  1. CLOLAR [Suspect]
     Indication: ACUTE LYMPHOCYTIC LEUKAEMIA
  2. BUSULFAN (BUSULFAN) UNKNOWN [Suspect]
     Indication: ACUTE LYMPHOCYTIC LEUKAEMIA

REACTIONS (7)
  - ABNORMAL FAECES [None]
  - ACUTE GRAFT VERSUS HOST DISEASE [None]
  - INFECTION [None]
  - NO THERAPEUTIC RESPONSE [None]
  - RESPIRATORY DISTRESS [None]
  - RESPIRATORY TRACT INFECTION [None]
  - URINARY TRACT INFECTION [None]
